FAERS Safety Report 7968939-8 (Version None)
Quarter: 2011Q4

REPORT INFORMATION
  Report Type: 
  Country: None (occurrence: None)
  Receive Date: 20111209
  Receipt Date: 20111207
  Transmission Date: 20120403
  Serious: Yes (Other)
  Sender: FDA-Public Use
  Company Number: US-AMGEN-USASP2010001027

PATIENT
  Sex: Male

DRUGS (4)
  1. NPLATE [Suspect]
     Indication: IDIOPATHIC THROMBOCYTOPENIC PURPURA
     Dosage: 60 MUG, UNK
     Route: 058
     Dates: start: 20100609
  2. NPLATE [Suspect]
     Indication: THROMBOCYTOPENIA
     Dosage: 57 MUG, UNK
     Dates: start: 20100609
  3. CORTICOSTEROIDS [Concomitant]
     Indication: IDIOPATHIC THROMBOCYTOPENIC PURPURA
     Dosage: UNK
  4. RITUXIMAB [Concomitant]
     Indication: IDIOPATHIC THROMBOCYTOPENIC PURPURA
     Dosage: UNK
     Dates: start: 20100407

REACTIONS (11)
  - LEUKOPENIA [None]
  - AURICULAR SWELLING [None]
  - CONCUSSION [None]
  - HEAD INJURY [None]
  - IRON DEFICIENCY [None]
  - BACK PAIN [None]
  - PLATELET COUNT DECREASED [None]
  - JOINT INJURY [None]
  - INJECTION SITE PAIN [None]
  - POST-TRAUMATIC HEADACHE [None]
  - EAR PAIN [None]
